FAERS Safety Report 24097698 (Version 1)
Quarter: 2024Q3

REPORT INFORMATION
  Report Type: Spontaneous
  Country: US (occurrence: None)
  Receive Date: 20240715
  Receipt Date: 20240715
  Transmission Date: 20241016
  Serious: Yes (Life-Threatening, Hospitalization, Disabling, Other)
  Sender: Public
  Company Number: None

PATIENT
  Age: 36 Year
  Sex: Male
  Weight: 76.5 kg

DRUGS (4)
  1. GLEEVEC [Suspect]
     Active Substance: IMATINIB MESYLATE
     Dosage: DAILY ORAL
     Route: 048
  2. HALDOL [Suspect]
     Active Substance: HALOPERIDOL
  3. RISPERDAL [Suspect]
     Active Substance: RISPERIDONE
  4. ZYPREXA [Suspect]
     Active Substance: OLANZAPINE

REACTIONS (18)
  - Cardiac failure [None]
  - Hepatic failure [None]
  - Drug-induced liver injury [None]
  - Drug ineffective [None]
  - Victim of abuse [None]
  - Victim of crime [None]
  - Multi-organ disorder [None]
  - Toxicity to various agents [None]
  - Neurotoxicity [None]
  - Cerebral disorder [None]
  - Spinal disorder [None]
  - Renal disorder [None]
  - Eye disorder [None]
  - Arterial disorder [None]
  - Gastrointestinal disorder [None]
  - General physical health deterioration [None]
  - Rectal haemorrhage [None]
  - Product complaint [None]

NARRATIVE: CASE EVENT DATE: 20230621
